FAERS Safety Report 5197254-3 (Version None)
Quarter: 2006Q4

REPORT INFORMATION
  Report Type: 
  Country: None (occurrence: None)
  Receive Date: 20061227
  Receipt Date: 20061218
  Transmission Date: 20070319
  Serious: Yes (Hospitalization)
  Sender: FDA-Public Use
  Company Number: 233465

PATIENT
  Age: 46 Year
  Sex: Female
  Weight: 85 kg

DRUGS (11)
  1. XOLAIR [Suspect]
     Indication: ASTHMA
     Dosage: 300 MG, Q4W, SUBCUTANEOUS
     Route: 058
     Dates: start: 20061125
  2. SINGULAIR [Concomitant]
  3. BUDESONIDE [Concomitant]
  4. FORMOTEROL (FORMOTEROL FUMARATE) [Concomitant]
  5. TOPAMAX [Concomitant]
  6. CHLORPROMAZINE [Concomitant]
  7. LIMBITROL (AMITRIPTYLINE HYDROCHLORIDE) [Concomitant]
  8. FLUOXETINE [Concomitant]
  9. TRAMADOL HCL [Concomitant]
  10. AZITHROMYCIN (AZITHRYOMYCIN) [Concomitant]
  11. CORTICOSTEROIDS (UNK INGREDIENTS) (CORTICOSTEROID NOS) [Concomitant]

REACTIONS (3)
  - INTERVERTEBRAL DISC PROTRUSION [None]
  - NEUROPATHY PERIPHERAL [None]
  - WHITE BLOOD CELL COUNT ABNORMAL [None]
